FAERS Safety Report 13454580 (Version 1)
Quarter: 2017Q2

REPORT INFORMATION
  Report Type: Spontaneous
  Country: US (occurrence: US)
  Receive Date: 20170418
  Receipt Date: 20170418
  Transmission Date: 20170830
  Serious: No
  Sender: FDA-Public Use
  Company Number: US-ALLERGAN-1705451US

PATIENT
  Age: 40 Year
  Sex: Female

DRUGS (1)
  1. LATISSE [Suspect]
     Active Substance: BIMATOPROST
     Indication: PRODUCT USED FOR UNKNOWN INDICATION
     Dosage: .5 GTT, QPM
     Route: 061

REACTIONS (7)
  - Blepharal pigmentation [Unknown]
  - Wrong technique in product usage process [Unknown]
  - Hypersensitivity [Unknown]
  - Erythema of eyelid [Unknown]
  - Incorrect drug dosage form administered [Unknown]
  - Eye irritation [Recovered/Resolved]
  - Drug ineffective [Unknown]
